FAERS Safety Report 25362958 (Version 1)
Quarter: 2025Q2

REPORT INFORMATION
  Report Type: Spontaneous
  Country: TW (occurrence: TW)
  Receive Date: 20250527
  Receipt Date: 20250527
  Transmission Date: 20250717
  Serious: Yes (Hospitalization, Other)
  Sender: ABBVIE
  Company Number: TW-TAKEDA-2025TUS048186

PATIENT
  Age: 51 Year
  Sex: Female

DRUGS (1)
  1. LEUPROLIDE ACETATE [Suspect]
     Active Substance: LEUPROLIDE ACETATE
     Indication: Uterine leiomyoma
     Route: 065

REACTIONS (3)
  - Degeneration of uterine leiomyoma [Unknown]
  - Uterine haemorrhage [Unknown]
  - Infarction [Unknown]
